FAERS Safety Report 16630883 (Version 4)
Quarter: 2019Q3

REPORT INFORMATION
  Report Type: Report from Study
  Country: None (occurrence: US)
  Receive Date: 20190725
  Receipt Date: 20190923
  Transmission Date: 20191004
  Serious: Yes (Hospitalization, Other)
  Sender: FDA-Public Use
  Company Number: US-ABBVIE-19K-163-2861016-00

PATIENT
  Sex: Male
  Weight: 74.46 kg

DRUGS (1)
  1. HUMIRA [Suspect]
     Active Substance: ADALIMUMAB
     Indication: RHEUMATOID ARTHRITIS
     Dosage: HUMIRA CITRATE FREE     6 PENS 84 DAYS
     Route: 058
     Dates: start: 2016, end: 201905

REACTIONS (5)
  - Cardiac dysfunction [Not Recovered/Not Resolved]
  - Cardiac infection [Not Recovered/Not Resolved]
  - Pneumonia [Unknown]
  - Gait disturbance [Not Recovered/Not Resolved]
  - Pain [Not Recovered/Not Resolved]

NARRATIVE: CASE EVENT DATE: 2019
